FAERS Safety Report 6469100-9 (Version None)
Quarter: 2009Q4

REPORT INFORMATION
  Report Type: 
  Country: None (occurrence: None)
  Receive Date: 20091203
  Receipt Date: 20071025
  Transmission Date: 20100525
  Serious: Yes (Death)
  Sender: FDA-Public Use
  Company Number: US-ELI_LILLY_AND_COMPANY-US200705005599

PATIENT
  Sex: Male

DRUGS (11)
  1. BYETTA [Suspect]
     Indication: TYPE 2 DIABETES MELLITUS
     Dosage: 5 UG, 2/D
     Route: 058
     Dates: start: 20051101, end: 20051201
  2. BYETTA [Suspect]
     Dosage: 10 UG, 2/D
     Route: 058
     Dates: start: 20051201, end: 20060910
  3. GLUCOPHAGE [Concomitant]
     Indication: DIABETES MELLITUS
     Dosage: 1000 MG, 2/D
     Route: 065
  4. AVAPRO [Concomitant]
     Indication: HYPERTENSION
     Dosage: 300 MG, DAILY (1/D)
  5. NORVASC [Concomitant]
     Indication: HYPERTENSION
     Dosage: 10 MG, DAILY (1/D)
     Route: 065
  6. LASIX [Concomitant]
     Indication: RENAL FAILURE CHRONIC
     Dosage: 40 MG, DAILY (1/D)
     Route: 065
  7. LANTUS [Concomitant]
     Indication: DIABETES MELLITUS
     Dosage: 35 U, EACH EVENING
     Route: 065
  8. TRICOR [Concomitant]
     Indication: BLOOD CHOLESTEROL INCREASED
     Dosage: 145 MG, DAILY (1/D)
     Route: 065
  9. LOVASTATIN [Concomitant]
     Indication: BLOOD CHOLESTEROL INCREASED
     Dosage: 40 MG, DAILY (1/D)
     Route: 065
  10. COREG [Concomitant]
     Indication: HYPERTENSION
     Dosage: 37.5 MG, 2/D
     Route: 065
  11. ASPIRIN [Concomitant]
     Indication: CORONARY ARTERY DISEASE
     Dosage: 80 MG, DAILY (1/D)
     Route: 065

REACTIONS (1)
  - SUDDEN CARDIAC DEATH [None]
